FAERS Safety Report 8616707-6 (Version None)
Quarter: 2012Q3

REPORT INFORMATION
  Report Type: 
  Country: None (occurrence: None)
  Receive Date: 20120823
  Receipt Date: 20120816
  Transmission Date: 20120928
  Serious: Yes (Other)
  Sender: FDA-Public Use
  Company Number: CA-ROCHE-1103917

PATIENT
  Sex: Female

DRUGS (4)
  1. TAXOTERE [Suspect]
     Indication: BREAST CANCER
  2. LETROZOLE [Suspect]
     Indication: BREAST CANCER
     Route: 048
  3. EXEMESTANE [Suspect]
     Indication: PRODUCT USED FOR UNKNOWN INDICATION
  4. XELODA [Suspect]
     Indication: BREAST CANCER

REACTIONS (2)
  - DISEASE PROGRESSION [None]
  - WEIGHT INCREASED [None]
